FAERS Safety Report 4913296-4 (Version None)
Quarter: 2006Q1

REPORT INFORMATION
  Report Type: 
  Country: None (occurrence: None)
  Receive Date: 20060210
  Receipt Date: 20060126
  Transmission Date: 20060701
  Serious: Yes (Hospitalization)
  Sender: FDA-Public Use
  Company Number: RU-2005-017748

PATIENT
  Age: 22 Year
  Sex: Male

DRUGS (5)
  1. BETAFERON 250 ?G, 500 ?G AND COPAXONE (BETAFERON (SH Y 579Y))INJECTION [Suspect]
     Indication: MULTIPLE SCLEROSIS
     Dosage: 8 OR 16 MIU, EVERY 2D, SUBCUTANEOUS
     Route: 058
     Dates: start: 20050523, end: 20051005
  2. NAPHAZOLINE HCL [Concomitant]
  3. CITRAMON (ACETYLSALICYLIC ACID, PHENACETIN) [Concomitant]
  4. SALBUTAMOL [Concomitant]
  5. ACETAMINOPHEN [Concomitant]

REACTIONS (3)
  - ASTHMA [None]
  - GENERAL PHYSICAL HEALTH DETERIORATION [None]
  - INFLUENZA LIKE ILLNESS [None]
